FAERS Safety Report 25931621 (Version 1)
Quarter: 2025Q4

REPORT INFORMATION
  Report Type: Spontaneous
  Country: EU (occurrence: EU)
  Receive Date: 20251016
  Receipt Date: 20251016
  Transmission Date: 20260117
  Serious: Yes (Death)
  Sender: MYLAN
  Company Number: None

PATIENT
  Age: 61 Year
  Sex: Male
  Weight: 117 kg

DRUGS (2)
  1. ATORVASTATIN [Interacting]
     Active Substance: ATORVASTATIN
     Indication: Dyslipidaemia
     Dosage: 40 MILLIGRAM, QD
     Dates: end: 20240804
  2. FUSIDATE SODIUM [Interacting]
     Active Substance: FUSIDATE SODIUM
     Indication: Osteitis
     Dosage: 1500 MILLIGRAM, QD (500 MG 3X/DAY)
     Dates: start: 20240708, end: 20240804

REACTIONS (2)
  - Rhabdomyolysis [Fatal]
  - Contraindicated product prescribed [Fatal]

NARRATIVE: CASE EVENT DATE: 20240708
